FAERS Safety Report 13372822 (Version 1)
Quarter: 2017Q1

REPORT INFORMATION
  Report Type: Spontaneous
  Country: US (occurrence: US)
  Receive Date: 20170325
  Receipt Date: 20170325
  Transmission Date: 20170429
  Serious: Yes (Hospitalization)
  Sender: FDA-Public Use
  Company Number: None

PATIENT
  Age: 61 Year
  Sex: Male
  Weight: 119 kg

DRUGS (43)
  1. MINEROL OIL-HYDROPHILIC PETROLEUM OINTMENT [Concomitant]
  2. ATORVASTATIN [Concomitant]
     Active Substance: ATORVASTATIN
  3. DOCUSATE SODIUM-SENNOSIDES [Concomitant]
     Active Substance: DOCUSATE SODIUM\SENNOSIDES A AND B
  4. HYDROCORTISONE. [Concomitant]
     Active Substance: HYDROCORTISONE
  5. RIVAROXABAN [Concomitant]
     Active Substance: RIVAROXABAN
  6. ASPIRIN. [Concomitant]
     Active Substance: ASPIRIN
  7. SELENIUM SULF-PYRITHIONE-UREA [Concomitant]
  8. CEFEPIME [Concomitant]
     Active Substance: CEFEPIME HYDROCHLORIDE
  9. CHOLECALCIFEROL [Concomitant]
     Active Substance: CHOLECALCIFEROL
  10. DOXYCYCLINE HYCLATE. [Concomitant]
     Active Substance: DOXYCYCLINE HYCLATE
  11. MICONAZOLE. [Concomitant]
     Active Substance: MICONAZOLE
  12. ZOLPIDEM [Concomitant]
     Active Substance: ZOLPIDEM\ZOLPIDEM TARTRATE
  13. FUROSEMIDE. [Concomitant]
     Active Substance: FUROSEMIDE
  14. NYSTOP [Concomitant]
     Active Substance: NYSTATIN
  15. PRAMIPEXOLE. [Concomitant]
     Active Substance: PRAMIPEXOLE
  16. SACCHAROMYCES BOULARDII [Concomitant]
     Active Substance: SACCHAROMYCES CEREVISIAE
  17. CALCITRIOL. [Concomitant]
     Active Substance: CALCITRIOL
  18. MODAFINIL. [Concomitant]
     Active Substance: MODAFINIL
  19. SIMVASTATIN. [Concomitant]
     Active Substance: SIMVASTATIN
  20. TRAMADOL. [Concomitant]
     Active Substance: TRAMADOL
  21. ENOXAPARIN [Suspect]
     Active Substance: ENOXAPARIN
     Indication: THROMBOSIS PROPHYLAXIS
     Route: 058
  22. DIPHENHYDRAMINE. [Concomitant]
     Active Substance: DIPHENHYDRAMINE
  23. METOPROLOL. [Concomitant]
     Active Substance: METOPROLOL
  24. OMEPRAZOLE. [Concomitant]
     Active Substance: OMEPRAZOLE
  25. HYPROMELLOSE [Concomitant]
     Active Substance: HYPROMELLOSES
  26. LISINOPRIL. [Concomitant]
     Active Substance: LISINOPRIL
  27. POTASSIUM CHLORIDE. [Concomitant]
     Active Substance: POTASSIUM CHLORIDE
  28. ROPINIROLE. [Concomitant]
     Active Substance: ROPINIROLE
  29. MUPIROCIN. [Concomitant]
     Active Substance: MUPIROCIN
  30. MAGNESIUM OXIDE. [Concomitant]
     Active Substance: MAGNESIUM OXIDE
  31. OMEGA 3 [Concomitant]
     Active Substance: OMEGA-3 FATTY ACIDS
  32. SKIN PROTECTANTS [Concomitant]
  33. ACETAMINOPHEN. [Concomitant]
     Active Substance: ACETAMINOPHEN
  34. HYDROCORTISONE. [Concomitant]
     Active Substance: HYDROCORTISONE
  35. ALLOPURINOL. [Concomitant]
     Active Substance: ALLOPURINOL
  36. GABAPENTIN. [Concomitant]
     Active Substance: GABAPENTIN
  37. MULTIPLE-VITAMINS-MINERALS [Concomitant]
  38. FERROUS SULFATE. [Concomitant]
     Active Substance: FERROUS SULFATE
  39. SODIUM CHLORIDE. [Concomitant]
     Active Substance: SODIUM CHLORIDE
  40. BISACODYL. [Concomitant]
     Active Substance: BISACODYL
  41. HYDRALAZINE [Concomitant]
     Active Substance: HYDRALAZINE HYDROCHLORIDE
  42. FENTANYL. [Concomitant]
     Active Substance: FENTANYL
  43. METHYLPHENIDATE. [Concomitant]
     Active Substance: METHYLPHENIDATE

REACTIONS (2)
  - Intra-abdominal haematoma [None]
  - Abdominal pain [None]

NARRATIVE: CASE EVENT DATE: 20160420
